FAERS Safety Report 6390439-X (Version None)
Quarter: 2009Q4

REPORT INFORMATION
  Report Type: 
  Country: None (occurrence: None)
  Receive Date: 20091006
  Receipt Date: 20090928
  Transmission Date: 20100525
  Serious: Yes (Hospitalization)
  Sender: FDA-Public Use
  Company Number: US-AVENTIS-200918671US

PATIENT
  Sex: Female

DRUGS (2)
  1. LANTUS [Suspect]
     Route: 058
     Dates: start: 20080101, end: 20090101
  2. LANTUS [Suspect]
     Dosage: DOSE: UNKNOWN
     Route: 058
     Dates: start: 20090101

REACTIONS (1)
  - RENAL TRANSPLANT [None]
